FAERS Safety Report 10073547 (Version 1)
Quarter: 2014Q2

REPORT INFORMATION
  Report Type: Spontaneous
  Country: BR (occurrence: BR)
  Receive Date: 20140411
  Receipt Date: 20140411
  Transmission Date: 20141212
  Serious: Yes (Other)
  Sender: FDA-Public Use
  Company Number: BR-ABBVIE-14P-020-1221522-00

PATIENT
  Sex: Female

DRUGS (6)
  1. UNKNOWN CORTICOID [Concomitant]
     Indication: PRODUCT USED FOR UNKNOWN INDICATION
     Dosage: ONE DAY THE PATIENT TAKES HALF TABLET AND IN THE NEXT DAY THE PATIENT TAKES ONE TABLET.
  2. HUMIRA [Suspect]
     Indication: RHEUMATOID ARTHRITIS
  3. CORTICOIDS [Suspect]
     Indication: PRODUCT USED FOR UNKNOWN INDICATION
  4. ENBREL [Suspect]
     Indication: RHEUMATOID ARTHRITIS
  5. ACTEMRA [Suspect]
     Indication: RHEUMATOID ARTHRITIS
     Dosage: ONE INFUSION PER MONTH
     Dates: start: 201311
  6. PREGABALIN [Concomitant]
     Indication: PAIN

REACTIONS (12)
  - Unevaluable event [Unknown]
  - Panic disorder [Unknown]
  - Depression [Unknown]
  - Arthritis [Unknown]
  - Dyspnoea [Unknown]
  - Screaming [Unknown]
  - Crying [Unknown]
  - Overweight [Unknown]
  - Weight increased [Unknown]
  - Drug ineffective [Unknown]
  - Arthralgia [Unknown]
  - Joint swelling [Unknown]
